FAERS Safety Report 6543515-2 (Version None)
Quarter: 2010Q1

REPORT INFORMATION
  Report Type: 
  Country: None (occurrence: None)
  Receive Date: 20100120
  Receipt Date: 20100114
  Transmission Date: 20100710
  Serious: Yes (Death)
  Sender: FDA-Public Use
  Company Number: B0625952A

PATIENT
  Age: 74 Year
  Sex: Male

DRUGS (5)
  1. SEROXAT [Suspect]
     Dates: start: 19970101
  2. SEROXAT [Suspect]
     Dates: start: 19971015
  3. SEROXAT [Suspect]
     Dates: start: 19980611
  4. SEROXAT [Suspect]
     Dates: start: 19991213
  5. SEROXAT [Suspect]

REACTIONS (1)
  - COMPLETED SUICIDE [None]
